FAERS Safety Report 7440807-X (Version None)
Quarter: 2011Q2

REPORT INFORMATION
  Report Type: 
  Country: None (occurrence: None)
  Receive Date: 20110427
  Receipt Date: 20110425
  Transmission Date: 20111010
  Serious: Yes (Other)
  Sender: FDA-Public Use
  Company Number: JP-PFIZER INC-2011088349

PATIENT
  Age: 4 Year
  Sex: Male
  Weight: 15 kg

DRUGS (5)
  1. SOLU-MEDROL [Suspect]
     Indication: DERMATOMYOSITIS
     Dosage: 450 MG, 1X/DAY
     Route: 017
     Dates: start: 20110308, end: 20110308
  2. GLUCOSE [Suspect]
     Dosage: UNK
     Route: 042
     Dates: start: 20110308, end: 20110308
  3. SOLDEM 3A [Suspect]
     Dosage: UNK
     Route: 042
     Dates: start: 20110225, end: 20110308
  4. PETROLATUM [Concomitant]
     Route: 003
  5. HEPARIN SODIUM [Suspect]
     Dosage: UNK
     Route: 042
     Dates: start: 20110308, end: 20110308

REACTIONS (2)
  - ECZEMA [None]
  - ANAPHYLACTIC REACTION [None]
